FAERS Safety Report 18569092 (Version 1)
Quarter: 2020Q4

REPORT INFORMATION
  Report Type: Spontaneous
  Country: US (occurrence: US)
  Receive Date: 20201201
  Receipt Date: 20201201
  Transmission Date: 20210114
  Serious: Yes (Hospitalization)
  Sender: FDA-Public Use
  Company Number: None

PATIENT
  Age: 53 Year
  Sex: Male

DRUGS (13)
  1. GABAPENTIN. [Concomitant]
     Active Substance: GABAPENTIN
  2. METOLAZONE. [Concomitant]
     Active Substance: METOLAZONE
  3. TADALAFIL 20MG TAB [Suspect]
     Active Substance: TADALAFIL
     Indication: PULMONARY ARTERIAL HYPERTENSION
     Dosage: ?          OTHER FREQUENCY:QAM-QPM;?
     Route: 048
     Dates: start: 20171219
  4. DIGOXIN. [Concomitant]
     Active Substance: DIGOXIN
  5. METHYLPHENID [Concomitant]
     Active Substance: METHYLPHENIDATE
  6. NARCOSOFT II [Concomitant]
  7. OXYCODONE [Concomitant]
     Active Substance: OXYCODONE
  8. PROVIGIL [Concomitant]
     Active Substance: MODAFINIL
  9. METFORMIN [Concomitant]
     Active Substance: METFORMIN HYDROCHLORIDE
  10. AMBRISENTAN 10MG TAB [Suspect]
     Active Substance: AMBRISENTAN
     Indication: PULMONARY ARTERIAL HYPERTENSION
     Route: 048
     Dates: start: 20171220
  11. LASIX [Concomitant]
     Active Substance: FUROSEMIDE
  12. LISINOPRIL. [Concomitant]
     Active Substance: LISINOPRIL
  13. TYVASO [Concomitant]
     Active Substance: TREPROSTINIL

REACTIONS (2)
  - Hypoxia [None]
  - Chest pain [None]

NARRATIVE: CASE EVENT DATE: 20201021
